FAERS Safety Report 13618715 (Version 3)
Quarter: 2017Q3

REPORT INFORMATION
  Report Type: Report from Study
  Country: US (occurrence: US)
  Receive Date: 20170606
  Receipt Date: 20170714
  Transmission Date: 20171127
  Serious: Yes (Disabling, Other)
  Sender: FDA-Public Use
  Company Number: US-JAZZ-2017-US-006589

PATIENT
  Age: 57 Year
  Sex: Female

DRUGS (48)
  1. ATROVENT [Concomitant]
     Active Substance: IPRATROPIUM BROMIDE
  2. BROVANA [Concomitant]
     Active Substance: ARFORMOTEROL TARTRATE
  3. PREDNISONE. [Concomitant]
     Active Substance: PREDNISONE
  4. ESTRADIOL CYPIONATE [Concomitant]
     Active Substance: ESTRADIOL CYPIONATE
  5. TRAMADOL HCL [Concomitant]
     Active Substance: TRAMADOL HYDROCHLORIDE
  6. XYREM [Suspect]
     Active Substance: SODIUM OXYBATE
     Indication: NARCOLEPSY
     Dosage: 2.25 G, BID
     Route: 048
     Dates: start: 200306, end: 200601
  7. LOSARTAN / HIDROCLOROTIAZIDA [Concomitant]
     Active Substance: HYDROCHLOROTHIAZIDE\LOSARTAN
  8. LORTAB [Concomitant]
     Active Substance: ACETAMINOPHEN\HYDROCODONE BITARTRATE
  9. QVAR [Concomitant]
     Active Substance: BECLOMETHASONE DIPROPIONATE
  10. BACLOFEN. [Concomitant]
     Active Substance: BACLOFEN
  11. OXYCONTIN [Concomitant]
     Active Substance: OXYCODONE HYDROCHLORIDE
  12. HYDROCODONE BITARTRATE AND ACETAMINOPHEN [Concomitant]
     Active Substance: ACETAMINOPHEN\HYDROCODONE BITARTRATE
  13. XOPENEX HFA [Concomitant]
     Active Substance: LEVALBUTEROL TARTRATE
  14. LEVSIN [Concomitant]
     Active Substance: HYOSCYAMINE SULFATE
  15. PROCARDIA [Concomitant]
     Active Substance: NIFEDIPINE
  16. CROMOLYN SODIUM. [Concomitant]
     Active Substance: CROMOLYN SODIUM
  17. LASIX [Concomitant]
     Active Substance: FUROSEMIDE
  18. AMPYRA [Concomitant]
     Active Substance: DALFAMPRIDINE
  19. LIDODERM [Concomitant]
     Active Substance: LIDOCAINE
  20. MAXAIR                             /00587603/ [Concomitant]
  21. ZYRTEC [Concomitant]
     Active Substance: CETIRIZINE HYDROCHLORIDE
  22. MINOCYCLINE [Concomitant]
     Active Substance: MINOCYCLINE\MINOCYCLINE HYDROCHLORIDE
  23. IMITREX [Concomitant]
     Active Substance: SUMATRIPTAN SUCCINATE
  24. SOMA [Concomitant]
     Active Substance: CARISOPRODOL
  25. ULTRAM [Concomitant]
     Active Substance: TRAMADOL HYDROCHLORIDE
  26. TOVIAZ [Concomitant]
     Active Substance: FESOTERODINE FUMARATE
  27. CARISOPRODOL. [Concomitant]
     Active Substance: CARISOPRODOL
  28. LINZESS [Concomitant]
     Active Substance: LINACLOTIDE
  29. MELOXICAM. [Concomitant]
     Active Substance: MELOXICAM
  30. XYREM [Suspect]
     Active Substance: SODIUM OXYBATE
     Indication: CATAPLEXY
     Dosage: 4.5 G, BID
     Route: 048
     Dates: start: 200601
  31. BOTOX COSMETIC [Concomitant]
     Active Substance: ONABOTULINUMTOXINA
  32. URIBEL [Concomitant]
     Active Substance: HYOSCYAMINE SULFATE\METHENAMINE\METHYLENE BLUE\PHENYL SALICYLATE\SODIUM PHOSPHATE, MONOBASIC, MONOHYDRATE
  33. OXYCODONE HYDROCHLORIDE. [Concomitant]
     Active Substance: OXYCODONE HYDROCHLORIDE
  34. BENTYL [Concomitant]
     Active Substance: DICYCLOMINE HYDROCHLORIDE
  35. AMLODIPINE BESYLATE. [Concomitant]
     Active Substance: AMLODIPINE BESYLATE
  36. CLONIDINE HCL [Concomitant]
     Active Substance: CLONIDINE HYDROCHLORIDE
  37. LEVOTHYROXINE                      /00068002/ [Concomitant]
     Active Substance: LEVOTHYROXINE
  38. LISINOPRIL. [Concomitant]
     Active Substance: LISINOPRIL
  39. OMEPRAZOLE. [Concomitant]
     Active Substance: OMEPRAZOLE
  40. PROVIGIL [Concomitant]
     Active Substance: MODAFINIL
  41. RESTASIS [Concomitant]
     Active Substance: CYCLOSPORINE
  42. TAMSULOSIN HCL [Concomitant]
     Active Substance: TAMSULOSIN
  43. NEURONTIN [Concomitant]
     Active Substance: GABAPENTIN
  44. SPIRONOLACTONE. [Concomitant]
     Active Substance: SPIRONOLACTONE
  45. SINGULAIR [Concomitant]
     Active Substance: MONTELUKAST SODIUM
  46. SUCRALFATE. [Concomitant]
     Active Substance: SUCRALFATE
  47. NASACORT ALLERGY 24HR [Concomitant]
     Active Substance: TRIAMCINOLONE ACETONIDE
  48. AUBAGIO [Concomitant]
     Active Substance: TERIFLUNOMIDE

REACTIONS (6)
  - Therapeutic response unexpected [Unknown]
  - Spinal laminectomy [Unknown]
  - Pre-existing condition improved [Unknown]
  - Disability [Unknown]
  - Spinal fusion surgery [Unknown]
  - Laryngitis [Unknown]

NARRATIVE: CASE EVENT DATE: 201705
